FAERS Safety Report 8190264-3 (Version None)
Quarter: 2012Q1

REPORT INFORMATION
  Report Type: 
  Country: None (occurrence: None)
  Receive Date: 20120305
  Receipt Date: 20120220
  Transmission Date: 20120608
  Serious: Yes (Death, Other)
  Sender: FDA-Public Use
  Company Number: 2012P1007632

PATIENT

DRUGS (1)
  1. HEPARIN [Suspect]
     Indication: EMBOLISM VENOUS
     Dosage: IV
     Route: 042

REACTIONS (2)
  - RENAL FAILURE ACUTE [None]
  - RETROPERITONEAL HAEMORRHAGE [None]
